FAERS Safety Report 8108775-5 (Version None)
Quarter: 2012Q1

REPORT INFORMATION
  Report Type: 
  Country: None (occurrence: None)
  Receive Date: 20120202
  Receipt Date: 20120126
  Transmission Date: 20120608
  Serious: Yes (Hospitalization, Other)
  Sender: FDA-Public Use
  Company Number: PHHY2012IT007007

PATIENT
  Sex: Female

DRUGS (2)
  1. OXALIPLATIN [Suspect]
     Dosage: 221 MG, ONCE/SINGLE
     Dates: start: 20120119
  2. OXALIPLATIN [Suspect]
     Indication: COLON CANCER
     Dosage: 221 MG, ONCE/SINGLE
     Dates: start: 20111228

REACTIONS (5)
  - BRONCHOSTENOSIS [None]
  - HEART RATE INCREASED [None]
  - LARYNGOSPASM [None]
  - BLOOD GASES ABNORMAL [None]
  - MEAN ARTERIAL PRESSURE DECREASED [None]
